FAERS Safety Report 9024595 (Version 1)
Quarter: 2013Q1

REPORT INFORMATION
  Report Type: Spontaneous
  Country: BR (occurrence: None)
  Receive Date: 20130103
  Receipt Date: 20130103
  Transmission Date: 20140127
  Serious: Yes (Death, Hospitalization, Other)
  Sender: FDA-Public Use
  Company Number: BR-003212

PATIENT
  Age: 11 Year
  Sex: Female
  Weight: 25 kg

DRUGS (2)
  1. NAGLAZYME [Suspect]
     Indication: MUCOPOLYSACCHARIDOSIS VI
     Route: 041
     Dates: start: 20100519, end: 20120321
  2. TAMIFLU (OSELTAMIVIR PHOSPHATE) [Concomitant]

REACTIONS (5)
  - Bronchopneumonia [None]
  - Respiratory failure [None]
  - Sepsis [None]
  - Abdominal distension [None]
  - Abdominal pain [None]
